FAERS Safety Report 24274471 (Version 1)
Quarter: 2024Q3

REPORT INFORMATION
  Report Type: Spontaneous
  Country: PL (occurrence: None)
  Receive Date: 20240902
  Receipt Date: 20240902
  Transmission Date: 20241017
  Serious: Yes (Other)
  Sender: ASTRAZENECA
  Company Number: 2024A187112

PATIENT
  Age: 76 Year
  Sex: Female

DRUGS (9)
  1. ROSUVASTATIN [Suspect]
     Active Substance: ROSUVASTATIN\ROSUVASTATIN CALCIUM
     Indication: Hypercholesterolaemia
     Route: 048
  2. RAMIPRIL [Suspect]
     Active Substance: RAMIPRIL
     Indication: Hypertension
  3. PIRACETAM [Suspect]
     Active Substance: PIRACETAM
     Indication: Cognitive disorder
  4. DABIGATRAN [Suspect]
     Active Substance: DABIGATRAN
     Indication: Atrial fibrillation
  5. VITAMIN D3 [Suspect]
     Active Substance: CHOLECALCIFEROL
     Indication: Vitamin supplementation
  6. BISOPROLOL [Suspect]
     Active Substance: BISOPROLOL\BISOPROLOL FUMARATE
     Indication: Atrial fibrillation
  7. DICLOFENAC [Suspect]
     Active Substance: DICLOFENAC
     Indication: Osteoarthritis
     Dosage: 50 MILLIGRAM, AS NEEDED
  8. DICLOFENAC [Suspect]
     Active Substance: DICLOFENAC
     Indication: Pain
     Dosage: 50 MILLIGRAM, AS NEEDED
  9. DOXAZOSIN [Suspect]
     Active Substance: DOXAZOSIN MESYLATE
     Indication: Hypertension

REACTIONS (5)
  - Syncope [Recovering/Resolving]
  - Orthostatic hypotension [Recovered/Resolved]
  - Fall [Recovered/Resolved]
  - Blood pressure inadequately controlled [Unknown]
  - Dizziness [Recovering/Resolving]
